FAERS Safety Report 22609596 (Version 1)
Quarter: 2023Q2

REPORT INFORMATION
  Report Type: Report from Study
  Country: CA (occurrence: CA)
  Receive Date: 20230616
  Receipt Date: 20230616
  Transmission Date: 20230722
  Serious: Yes (Hospitalization)
  Sender: FDA-Public Use
  Company Number: CA-JNJFOC-20230567320

PATIENT
  Age: 29 Year
  Sex: Male
  Weight: 87 kg

DRUGS (1)
  1. REMICADE [Suspect]
     Active Substance: INFLIXIMAB
     Indication: Colitis ulcerative
     Dosage: WEEK 1 10MG/KG , WEEK 6 10MG /KG, RECEIVED DOSE ON 24-MAY-2023.
     Route: 041
     Dates: start: 20230324

REACTIONS (7)
  - Diarrhoea haemorrhagic [Recovering/Resolving]
  - Colectomy [Unknown]
  - Anaemia [Recovering/Resolving]
  - Dizziness [Recovering/Resolving]
  - Nausea [Recovering/Resolving]
  - Diarrhoea [Recovering/Resolving]
  - Off label use [Unknown]

NARRATIVE: CASE EVENT DATE: 20230101
